FAERS Safety Report 4721296-2 (Version None)
Quarter: 2005Q3

REPORT INFORMATION
  Report Type: 
  Country: None (occurrence: None)
  Receive Date: 20050721
  Receipt Date: 20040602
  Transmission Date: 20060218
  Serious: No
  Sender: FDA-Public Use
  Company Number: US-BRISTOL-MYERS SQUIBB COMPANY-12603940

PATIENT
  Age: 77 Year
  Sex: Female
  Weight: 48 kg

DRUGS (2)
  1. COUMADIN [Suspect]
     Indication: ATRIAL FIBRILLATION
     Dosage: START DATE IN OCT-2003 OR NOV-2003. BEGAN COUMADIN AT VARYING DOSAGES, AND DOSE WAS INCR. TO 7.5MG
     Route: 048
     Dates: start: 20030101
  2. LANOXIN [Concomitant]

REACTIONS (3)
  - BLOOD URINE PRESENT [None]
  - ERYTHEMA [None]
  - FATIGUE [None]
